FAERS Safety Report 21339621 (Version 1)
Quarter: 2022Q3

REPORT INFORMATION
  Report Type: Spontaneous
  Country: US (occurrence: US)
  Receive Date: 20220915
  Receipt Date: 20220915
  Transmission Date: 20221027
  Serious: No
  Sender: FDA-Public Use
  Company Number: US-SA-SAC20220915000086

PATIENT
  Age: 6 Year
  Sex: Male
  Weight: 22.6 kg

DRUGS (4)
  1. DUPIXENT [Suspect]
     Active Substance: DUPILUMAB
     Indication: Dermatitis atopic
     Dosage: 300 MG, Q4W
     Route: 058
     Dates: start: 20220321
  2. ALLEGRA ALLERGY [Concomitant]
     Active Substance: FEXOFENADINE HYDROCHLORIDE
  3. AQUAPHOR (XIPAMIDE) [Concomitant]
     Active Substance: XIPAMIDE
     Dosage: UNK
  4. LORATADINE [Concomitant]
     Active Substance: LORATADINE
     Dosage: UNK

REACTIONS (4)
  - Dry skin [Unknown]
  - Inflammation [Unknown]
  - Abdominal discomfort [Unknown]
  - Dry eye [Unknown]
